FAERS Safety Report 4358785-9 (Version None)
Quarter: 2004Q2

REPORT INFORMATION
  Report Type: 
  Country: None (occurrence: None)
  Receive Date: 20040511
  Receipt Date: 20040427
  Transmission Date: 20050107
  Serious: Yes (Other)
  Sender: FDA-Public Use
  Company Number: T02-USA-01514-01

PATIENT
  Age: 68 Year
  Sex: Male
  Weight: 86.2 kg

DRUGS (5)
  1. MEMANTINE (OPEN LABEL, PHASE B) (MEMANTINE) [Suspect]
     Indication: DEMENTIA ALZHEIMER'S TYPE
     Dosage: 20 MG QD PO
     Route: 048
     Dates: start: 20020530, end: 20020719
  2. MJENATINE (OPEN LABEL, PHASE B) (MEMANTINE) [Suspect]
     Indication: DEMENTIA ALZHEIMER'S TYPE
     Dosage: 20 MG QD PO
     Route: 048
     Dates: start: 20020723
  3. MEMANTINE (UNBLINDED, PHASE A) (MEMANTINE) [Suspect]
     Indication: DEMENTIA ALZHEIMER'S TYPE
     Dosage: 10MG BID PO
     Route: 048
     Dates: start: 20020501, end: 20020529
  4. WELLBUTRIN [Suspect]
     Indication: ANTIDEPRESSANT THERAPY
     Dosage: 150 MG QD PO
     Route: 048
     Dates: start: 20020115, end: 20020719
  5. ARICEPT [Concomitant]

REACTIONS (11)
  - AGGRESSION [None]
  - AGITATION [None]
  - BLOOD GLUCOSE INCREASED [None]
  - BLOOD URINE PRESENT [None]
  - COMA [None]
  - DILATATION VENTRICULAR [None]
  - GRAND MAL CONVULSION [None]
  - HEART RATE INCREASED [None]
  - INCONTINENCE [None]
  - LOSS OF CONSCIOUSNESS [None]
  - OXYGEN SATURATION DECREASED [None]
